FAERS Safety Report 13351689 (Version 1)
Quarter: 2017Q1

REPORT INFORMATION
  Report Type: Spontaneous
  Country: US (occurrence: US)
  Receive Date: 20170320
  Receipt Date: 20170320
  Transmission Date: 20170429
  Serious: Yes (Hospitalization)
  Sender: FDA-Public Use
  Company Number: US-PFIZER INC-2017113498

PATIENT
  Age: 61 Year
  Sex: Male
  Weight: 82.55 kg

DRUGS (2)
  1. TORSEMIDE. [Concomitant]
     Active Substance: TORSEMIDE
     Indication: SWELLING
     Dosage: 2.5MG AS NEEDED ONCE A DAY
  2. LYRICA [Suspect]
     Active Substance: PREGABALIN
     Indication: DIABETIC NEUROPATHY
     Dosage: 100MG TWICE A DAY BY MOUTH
     Route: 048
     Dates: start: 201610

REACTIONS (2)
  - Chromaturia [Unknown]
  - Memory impairment [Recovering/Resolving]

NARRATIVE: CASE EVENT DATE: 201612
